FAERS Safety Report 11595784 (Version 1)
Quarter: 2015Q4

REPORT INFORMATION
  Report Type: Spontaneous
  Country: US (occurrence: None)
  Receive Date: 20151005
  Receipt Date: 20151005
  Transmission Date: 20160304
  Serious: No
  Sender: FDA-Public Use
  Company Number: None

PATIENT
  Age: 40 Year
  Sex: Female
  Weight: 95.26 kg

DRUGS (2)
  1. SULINDAC. [Concomitant]
     Active Substance: SULINDAC
  2. ENBREL [Suspect]
     Active Substance: ETANERCEPT
     Indication: PSORIASIS
     Route: 058
     Dates: start: 20150919

REACTIONS (2)
  - Injection site urticaria [None]
  - Injection site reaction [None]

NARRATIVE: CASE EVENT DATE: 20151001
